FAERS Safety Report 4781089-7 (Version None)
Quarter: 2005Q3

REPORT INFORMATION
  Report Type: 
  Country: None (occurrence: None)
  Receive Date: 20050926
  Receipt Date: 20050912
  Transmission Date: 20060218
  Serious: Yes (Hospitalization)
  Sender: FDA-Public Use
  Company Number: 8011747

PATIENT
  Age: 51 Year
  Sex: Male

DRUGS (5)
  1. KEPPRA [Suspect]
     Indication: EPILEPSY
     Dosage: 500 MG 2/D
     Dates: start: 20040601, end: 20050101
  2. KEPPRA [Suspect]
     Indication: EPILEPSY
     Dosage: 250 MG 2\D
     Dates: start: 20050101
  3. LAMOTRIGINE [Suspect]
     Indication: EPILEPSY
     Dosage: 150 MG 2/D
     Dates: start: 20040820
  4. ATENOLOL [Concomitant]
  5. LISINOPRIL [Concomitant]

REACTIONS (8)
  - ABDOMINAL DISCOMFORT [None]
  - ABDOMINAL PAIN [None]
  - CATHETER RELATED COMPLICATION [None]
  - CONSTIPATION [None]
  - FAECALOMA [None]
  - HYPERHIDROSIS [None]
  - RECTAL TENESMUS [None]
  - SOMNOLENCE [None]
